FAERS Safety Report 8414392-X (Version None)
Quarter: 2012Q2

REPORT INFORMATION
  Report Type: 
  Country: None (occurrence: None)
  Receive Date: 20120605
  Receipt Date: 20120531
  Transmission Date: 20120825
  Serious: Yes (Hospitalization)
  Sender: FDA-Public Use
  Company Number: US-BRISTOL-MYERS SQUIBB COMPANY-16640005

PATIENT
  Age: 65 Year
  Sex: Female
  Weight: 82 kg

DRUGS (10)
  1. CALCIUM CARBONATE [Concomitant]
     Indication: SUPPLEMENTATION THERAPY
     Dates: start: 20120330
  2. CALCITRIOL [Concomitant]
     Dates: start: 20120330
  3. CISPLATIN [Suspect]
     Indication: HEAD AND NECK CANCER
     Dosage: RECENT DOSE 14MAY12
     Route: 042
     Dates: start: 20120514
  4. SYNTHROID [Concomitant]
     Indication: THYROID HORMONE REPLACEMENT THERAPY
     Dates: start: 20120330
  5. ATIVAN [Concomitant]
     Indication: ANXIETY
     Dates: start: 20120514
  6. DEXAMETHASONE [Concomitant]
     Indication: ANTIEMETIC SUPPORTIVE CARE
     Dates: start: 20120514
  7. EMEND [Concomitant]
     Indication: ANTIEMETIC SUPPORTIVE CARE
     Dates: start: 20120514
  8. PROCHLORPERAZINE [Concomitant]
     Indication: ANTIEMETIC SUPPORTIVE CARE
     Dates: start: 20120514
  9. FLUOROURACIL [Suspect]
     Indication: HEAD AND NECK CANCER
     Dosage: RECENT DOSE 18MAY12
     Route: 042
     Dates: start: 20120514
  10. ATIVAN [Concomitant]
     Indication: NAUSEA
     Dates: start: 20120514

REACTIONS (2)
  - SYNCOPE [None]
  - DEHYDRATION [None]
